FAERS Safety Report 18991735 (Version 1)
Quarter: 2021Q1

REPORT INFORMATION
  Report Type: Spontaneous
  Country: US (occurrence: US)
  Receive Date: 20210309
  Receipt Date: 20210309
  Transmission Date: 20210420
  Serious: Yes (Other)
  Sender: FDA-Public Use
  Company Number: None

PATIENT
  Age: 68 Year
  Sex: Female
  Weight: 69.75 kg

DRUGS (9)
  1. ARMOUR THYROID [Concomitant]
     Active Substance: THYROID, PORCINE
  2. VITAMIN D3 [Concomitant]
     Active Substance: CHOLECALCIFEROL
  3. MULTIVITAMIN [Concomitant]
     Active Substance: VITAMINS
  4. MAGNESIUM [Concomitant]
     Active Substance: MAGNESIUM
  5. VTIAMIN C [Concomitant]
  6. CALCIUM CITRATE [Concomitant]
     Active Substance: CALCIUM CITRATE
  7. DUREZOL [Suspect]
     Active Substance: DIFLUPREDNATE
     Indication: EYE DISORDER
     Dosage: ?          QUANTITY:1 DROP(S);?
     Route: 047
     Dates: start: 20210309, end: 20210309
  8. KELP POWDER [Concomitant]
  9. OLIVE LEAF EXTRACT [Concomitant]

REACTIONS (1)
  - Anaphylactic reaction [None]

NARRATIVE: CASE EVENT DATE: 20210309
